FAERS Safety Report 17134424 (Version 1)
Quarter: 2019Q4

REPORT INFORMATION
  Report Type: Spontaneous
  Country: HR (occurrence: HR)
  Receive Date: 20191210
  Receipt Date: 20191210
  Transmission Date: 20200122
  Serious: Yes (Other)
  Sender: FDA-Public Use
  Company Number: HR-MYLANLABS-2019M1120070

PATIENT
  Age: 15 Year
  Sex: Male

DRUGS (2)
  1. BRUFEN [Suspect]
     Active Substance: IBUPROFEN
     Indication: PRODUCT USED FOR UNKNOWN INDICATION
     Dosage: 4 GRAM
     Route: 048
     Dates: start: 20190411, end: 20190411
  2. AERIUS (DESLORATADINE) [Suspect]
     Active Substance: DESLORATADINE
     Indication: PRODUCT USED FOR UNKNOWN INDICATION
     Dosage: 25 MILLIGRAM
     Route: 048
     Dates: start: 20190411, end: 20190411

REACTIONS (3)
  - No adverse event [Unknown]
  - Suicide attempt [Unknown]
  - Intentional overdose [Unknown]

NARRATIVE: CASE EVENT DATE: 20190411
